FAERS Safety Report 24367477 (Version 2)
Quarter: 2025Q3

REPORT INFORMATION
  Report Type: Report from Study
  Country: CA (occurrence: CA)
  Receive Date: 20240926
  Receipt Date: 20250926
  Transmission Date: 20251020
  Serious: Yes (Other)
  Sender: TAKEDA
  Company Number: CA-TAKEDA-2024TUS086626

PATIENT
  Sex: Male

DRUGS (3)
  1. VEDOLIZUMAB [Suspect]
     Active Substance: VEDOLIZUMAB
     Indication: Crohn^s disease
  2. VEDOLIZUMAB [Suspect]
     Active Substance: VEDOLIZUMAB
     Indication: Crohn^s disease
     Dosage: 108 MILLIGRAM, Q2WEEKS
     Dates: start: 20240725
  3. PREDNISONE [Concomitant]
     Active Substance: PREDNISONE

REACTIONS (11)
  - Pneumonia [Unknown]
  - Mood altered [Unknown]
  - Incorrect dose administered [Unknown]
  - Wrong technique in product usage process [Unknown]
  - Gastrointestinal pain [Unknown]
  - Diarrhoea [Unknown]
  - Anal incontinence [Unknown]
  - Abnormal faeces [Unknown]
  - Malaise [Unknown]
  - Nasopharyngitis [Unknown]
  - Arthralgia [Not Recovered/Not Resolved]
